FAERS Safety Report 10973859 (Version 1)
Quarter: 2015Q2

REPORT INFORMATION
  Report Type: Spontaneous
  Country: US (occurrence: US)
  Receive Date: 20150401
  Receipt Date: 20150401
  Transmission Date: 20150821
  Serious: Yes (Hospitalization, Other)
  Sender: FDA-Public Use
  Company Number: US-SA-2015SA038571

PATIENT
  Sex: Female

DRUGS (2)
  1. LANTUS SOLOSTAR [Suspect]
     Active Substance: INSULIN GLARGINE
     Indication: DIABETES MELLITUS
     Dosage: DOSE:46 UNIT(S)
     Route: 065
  2. SOLOSTAR [Concomitant]
     Active Substance: DEVICE

REACTIONS (12)
  - Macular degeneration [Unknown]
  - Malaise [Unknown]
  - Thyroid disorder [Unknown]
  - Fall [Unknown]
  - Haematochezia [None]
  - Urinary bladder haemorrhage [Unknown]
  - Bladder cancer [Not Recovered/Not Resolved]
  - Visual impairment [Unknown]
  - Hypoglycaemia [Unknown]
  - Incorrect product storage [Unknown]
  - Drug dose omission [Unknown]
  - Joint injury [Unknown]

NARRATIVE: CASE EVENT DATE: 2009
